FAERS Safety Report 7329865-0 (Version None)
Quarter: 2011Q1

REPORT INFORMATION
  Report Type: 
  Country: None (occurrence: None)
  Receive Date: 20110303
  Receipt Date: 20110225
  Transmission Date: 20110831
  Serious: Yes (Hospitalization)
  Sender: FDA-Public Use
  Company Number: JP-PFIZER INC-2011034787

PATIENT
  Age: 59 Year
  Sex: Male
  Weight: 50 kg

DRUGS (8)
  1. AMLODIPINE [Concomitant]
     Dosage: UNK
     Route: 048
  2. SUNITINIB MALATE [Suspect]
     Indication: RENAL CELL CARCINOMA
     Dosage: 25 MG, 1X/DAY
     Route: 048
     Dates: start: 20090120, end: 20091204
  3. FERROUS CITRATE [Concomitant]
     Dosage: UNK
     Route: 048
  4. LOXOPROFEN [Concomitant]
     Dosage: UNK
     Route: 048
  5. MYSLEE [Concomitant]
     Dosage: UNK
     Route: 048
  6. ADONA [Concomitant]
     Dosage: UNK
     Route: 048
  7. ZANTAC [Concomitant]
     Dosage: UNK
     Route: 048
  8. LENDORMIN [Concomitant]
     Dosage: UNK
     Route: 048

REACTIONS (2)
  - OEDEMA [None]
  - HYPOALBUMINAEMIA [None]
